FAERS Safety Report 6588805-2 (Version None)
Quarter: 2010Q1

REPORT INFORMATION
  Report Type: 
  Country: None (occurrence: None)
  Receive Date: 20100218
  Receipt Date: 20100210
  Transmission Date: 20100710
  Serious: Yes (Death)
  Sender: FDA-Public Use
  Company Number: JP-JNJFOC-20091205868

PATIENT
  Age: 80 Year
  Sex: Female

DRUGS (8)
  1. CRAVIT [Suspect]
     Indication: PHARYNGITIS
     Route: 048
  2. CRAVIT [Suspect]
     Indication: LARYNGITIS
     Route: 048
  3. ALL OTHER THERAPEUTIC PRODUCTS [Concomitant]
     Route: 048
  4. LYSOZYME HYDROCHLORIDE [Concomitant]
     Route: 048
  5. AZUNOL [Concomitant]
     Route: 048
  6. DIHYDROCODEINE BITARTRATE INJ [Concomitant]
     Route: 048
  7. ATELEC [Concomitant]
     Indication: HYPERTENSION
     Dosage: INITIATED BEFOR STARTING LEVOFLOXACIN
     Route: 048
  8. DIOVANE [Concomitant]
     Indication: HYPERTENSION
     Dosage: INITIATED BEFORE STARTING LEVOFLOXACIN
     Route: 048

REACTIONS (1)
  - DEATH [None]
